FAERS Safety Report 7732946-0 (Version None)
Quarter: 2011Q3

REPORT INFORMATION
  Report Type: 
  Country: None (occurrence: None)
  Receive Date: 20110907
  Receipt Date: 20110901
  Transmission Date: 20111222
  Serious: Yes (Other)
  Sender: FDA-Public Use
  Company Number: BR-PFIZER INC-2011204434

PATIENT
  Age: 54 Year
  Sex: Female
  Weight: 68 kg

DRUGS (2)
  1. CITALOPRAM [Concomitant]
     Indication: ANXIETY
     Dosage: UNK
     Dates: start: 20110525
  2. VARENICLINE TARTRATE [Suspect]
     Indication: TOBACCO USER
     Dosage: UNK
     Route: 048
     Dates: start: 20110525, end: 20110101

REACTIONS (2)
  - DRUG DEPENDENCE [None]
  - ANXIETY [None]
